FAERS Safety Report 6983383-8 (Version None)
Quarter: 2010Q3

REPORT INFORMATION
  Report Type: 
  Country: None (occurrence: None)
  Receive Date: 20100914
  Receipt Date: 20100908
  Transmission Date: 20110219
  Serious: Yes (Death, Hospitalization)
  Sender: FDA-Public Use
  Company Number: ES-BRISTOL-MYERS SQUIBB COMPANY-15275076

PATIENT
  Age: 77 Year
  Sex: Male

DRUGS (11)
  1. CETUXIMAB [Suspect]
     Indication: HEAD AND NECK CANCER
     Dosage: LOADING DOSE IN DAY 1 OF CYCLE 1 THEN 250MG/M2(1/W);RECENT INF:24AUG10
     Route: 042
     Dates: start: 20100608, end: 20100824
  2. CISPLATIN [Suspect]
     Indication: HEAD AND NECK CANCER
     Dosage: RECENT INF:17AUG10
     Route: 042
     Dates: start: 20100608, end: 20100817
  3. PEMETREXED DISODIUM [Suspect]
     Indication: HEAD AND NECK CANCER
     Dosage: RECENT INF:17AUG10
     Route: 042
     Dates: start: 20100608, end: 20100817
  4. FOLIC ACID [Concomitant]
     Indication: PROPHYLAXIS
     Dates: start: 20100527
  5. VITAMIN B-12 [Concomitant]
     Indication: PROPHYLAXIS
     Dates: start: 20100527
  6. DEXAMETHASONE [Concomitant]
     Indication: PROPHYLAXIS
     Dates: start: 20100607
  7. FENTANYL CITRATE [Concomitant]
     Indication: PAIN
     Dates: start: 20100824
  8. IMPORTAL [Concomitant]
     Indication: CONSTIPATION
  9. MYCOSTATIN [Concomitant]
     Indication: MUCOSAL INFLAMMATION
     Dates: start: 20100824
  10. LIDOCAINE [Concomitant]
     Indication: PAIN
     Dates: start: 20100824
  11. INNOHEP [Concomitant]
     Indication: PULMONARY EMBOLISM
     Dates: start: 20100720

REACTIONS (5)
  - ASPIRATION [None]
  - DRUG TOXICITY [None]
  - DYSPHAGIA [None]
  - MUCOSAL INFLAMMATION [None]
  - OROPHARYNGEAL PAIN [None]
